FAERS Safety Report 6553846-8 (Version None)
Quarter: 2010Q1

REPORT INFORMATION
  Report Type: 
  Country: None (occurrence: None)
  Receive Date: 20100127
  Receipt Date: 20100118
  Transmission Date: 20100710
  Serious: Yes (Hospitalization)
  Sender: FDA-Public Use
  Company Number: US-ROCHE-523939

PATIENT
  Sex: Female
  Weight: 56.2 kg

DRUGS (1)
  1. BEVACIZUMAB [Suspect]
     Indication: DRUG USE FOR UNKNOWN INDICATION
     Dosage: 10 MG/KG, Q2W
     Route: 042
     Dates: start: 20070711

REACTIONS (1)
  - SMALL INTESTINAL OBSTRUCTION [None]
